FAERS Safety Report 20737319 (Version 1)
Quarter: 2022Q2

REPORT INFORMATION
  Report Type: Spontaneous
  Country: US (occurrence: US)
  Receive Date: 20220421
  Receipt Date: 20220421
  Transmission Date: 20220720
  Serious: Yes (Other)
  Sender: FDA-Public Use
  Company Number: US-BRISTOL-MYERS SQUIBB COMPANY-2022-020771

PATIENT
  Age: 70 Year
  Sex: Female

DRUGS (8)
  1. REVLIMID [Suspect]
     Active Substance: LENALIDOMIDE
     Indication: Plasma cell myeloma
     Route: 048
  2. Aspirin EC coated tablets [Concomitant]
     Indication: Product used for unknown indication
     Route: 065
  3. Airborne Citrus chewable tablets [Concomitant]
     Indication: Product used for unknown indication
     Route: 065
  4. Magnesium oxide 400 mg tablets [Concomitant]
     Indication: Product used for unknown indication
     Route: 065
  5. Prevagen 100 mg capsules [Concomitant]
     Indication: Product used for unknown indication
     Route: 065
  6. Grapeseed xtra capsule sundown [Concomitant]
     Indication: Product used for unknown indication
     Route: 065
  7. B-complex tablets [Concomitant]
     Indication: Product used for unknown indication
     Route: 065
  8. Vitamin D  1000 unit capsules [Concomitant]
     Indication: Product used for unknown indication
     Route: 065

REACTIONS (2)
  - Cough [Unknown]
  - Bronchitis [Unknown]

NARRATIVE: CASE EVENT DATE: 20220401
